FAERS Safety Report 7259613-4 (Version None)
Quarter: 2011Q1

REPORT INFORMATION
  Report Type: 
  Country: None (occurrence: None)
  Receive Date: 20110130
  Receipt Date: 20100921
  Transmission Date: 20110831
  Serious: Yes (Other)
  Sender: FDA-Public Use
  Company Number: US-ABBOTT-10P-163-0663317-00

PATIENT
  Sex: Female

DRUGS (7)
  1. OMEPRAZOLE [Concomitant]
     Indication: PRODUCT USED FOR UNKNOWN INDICATION
  2. HUMIRA [Suspect]
     Indication: PSORIATIC ARTHROPATHY
     Route: 058
     Dates: start: 20100804, end: 20100804
  3. SEROQUEL [Concomitant]
     Indication: PRODUCT USED FOR UNKNOWN INDICATION
  4. HYDROXYZINE [Concomitant]
     Indication: PRODUCT USED FOR UNKNOWN INDICATION
  5. HUMIRA [Suspect]
     Indication: PSORIASIS
     Route: 058
     Dates: start: 20100728, end: 20100728
  6. LITHIUM [Concomitant]
     Indication: MANIA
  7. HUMIRA [Suspect]
     Route: 058
     Dates: start: 20100818

REACTIONS (8)
  - TENDERNESS [None]
  - CHILLS [None]
  - INJECTION SITE ERYTHEMA [None]
  - EYE SWELLING [None]
  - SUBCUTANEOUS ABSCESS [None]
  - HEADACHE [None]
  - RHINORRHOEA [None]
  - FACE OEDEMA [None]
